FAERS Safety Report 6074393-6 (Version None)
Quarter: 2009Q1

REPORT INFORMATION
  Report Type: 
  Country: None (occurrence: None)
  Receive Date: 20090211
  Receipt Date: 20090129
  Transmission Date: 20090719
  Serious: Yes (Hospitalization)
  Sender: FDA-Public Use
  Company Number: JP-AMGEN-US301748

PATIENT
  Sex: Male
  Weight: 48 kg

DRUGS (8)
  1. ENBREL [Suspect]
     Indication: RHEUMATOID ARTHRITIS
     Route: 058
     Dates: start: 20060922, end: 20080917
  2. MELOXICAM [Concomitant]
     Route: 048
  3. MUCOSTA [Concomitant]
  4. VOLTAREN [Concomitant]
     Dosage: UNSPECIFIED
  5. LANSOPRAZOLE [Concomitant]
     Route: 048
  6. BREDININ [Concomitant]
     Route: 048
     Dates: end: 20060922
  7. PREDNISOLONE [Concomitant]
     Indication: RHEUMATOID ARTHRITIS
     Route: 048
  8. HARNAL [Concomitant]
     Route: 048

REACTIONS (6)
  - ANAEMIA [None]
  - CARDIAC FAILURE CONGESTIVE [None]
  - FALL [None]
  - FOOT FRACTURE [None]
  - GASTRIC CANCER [None]
  - PNEUMONIA [None]
